FAERS Safety Report 7522011-X (Version None)
Quarter: 2011Q2

REPORT INFORMATION
  Report Type: 
  Country: None (occurrence: None)
  Receive Date: 20110603
  Receipt Date: 20110601
  Transmission Date: 20111010
  Serious: Yes (Hospitalization, Other)
  Sender: FDA-Public Use
  Company Number: US-TEVA-280641USA

PATIENT
  Sex: Male

DRUGS (6)
  1. PROPRANOLOL [Concomitant]
  2. CLOZAPINE [Suspect]
     Indication: BIPOLAR DISORDER
     Route: 048
  3. DIAZEPAM [Concomitant]
  4. RISPERIDONE [Concomitant]
  5. CLONAZEPAM [Concomitant]
  6. LEVOTHYROXINE SODIUM [Concomitant]

REACTIONS (4)
  - TESTICULAR SEMINOMA (PURE) [None]
  - LEUKOPENIA [None]
  - SCROTAL CANCER [None]
  - GRANULOCYTOPENIA [None]
